FAERS Safety Report 10601750 (Version 1)
Quarter: 2014Q4

REPORT INFORMATION
  Report Type: Spontaneous
  Country: US (occurrence: None)
  Receive Date: 20141121
  Receipt Date: 20141121
  Transmission Date: 20150529
  Serious: Yes (Disabling)
  Sender: FDA-Public Use
  Company Number: None

PATIENT
  Age: 54 Year
  Sex: Female
  Weight: 63.5 kg

DRUGS (1)
  1. TRAMADOL ER [Suspect]
     Active Substance: TRAMADOL HYDROCHLORIDE
     Indication: NEUROPATHY PERIPHERAL
     Dosage: 1
     Route: 048
     Dates: start: 20141103, end: 20141119

REACTIONS (13)
  - Migraine [None]
  - Product formulation issue [None]
  - Insomnia [None]
  - Vision blurred [None]
  - Dizziness [None]
  - Dry eye [None]
  - Nausea [None]
  - Restless legs syndrome [None]
  - Activities of daily living impaired [None]
  - Muscle twitching [None]
  - Paraesthesia [None]
  - Abdominal pain upper [None]
  - Energy increased [None]

NARRATIVE: CASE EVENT DATE: 20141118
